FAERS Safety Report 14632157 (Version 1)
Quarter: 2018Q1

REPORT INFORMATION
  Report Type: Spontaneous
  Country: US (occurrence: US)
  Receive Date: 20180313
  Receipt Date: 20180313
  Transmission Date: 20180509
  Serious: No
  Sender: FDA-Public Use
  Company Number: US-BAYER-2018-045941

PATIENT
  Age: 76 Year
  Sex: Male

DRUGS (3)
  1. PHILLIPS^ LIQUID GELS STOOL SOFTENER [Concomitant]
     Active Substance: DOCUSATE SODIUM
     Dosage: UNK
  2. PHILLIPS^ LAXATIVE DIETARY SUPPLEMENT [Concomitant]
     Active Substance: MAGNESIUM OXIDE
  3. ALEVE [Suspect]
     Active Substance: NAPROXEN SODIUM
     Indication: PAIN
     Route: 048

REACTIONS (2)
  - Product quality issue [None]
  - Poor quality drug administered [Unknown]
